FAERS Safety Report 8112780-2 (Version None)
Quarter: 2012Q1

REPORT INFORMATION
  Report Type: 
  Country: None (occurrence: None)
  Receive Date: 20120203
  Receipt Date: 20120125
  Transmission Date: 20120608
  Serious: Yes (Hospitalization, Other)
  Sender: FDA-Public Use
  Company Number: US-BRISTOL-MYERS SQUIBB COMPANY-16367773

PATIENT
  Age: 72 Year
  Sex: Male
  Weight: 41 kg

DRUGS (1)
  1. ABILIFY [Suspect]
     Dosage: 3-4 MONTH AGO

REACTIONS (4)
  - VIITH NERVE PARALYSIS [None]
  - LOSS OF CONSCIOUSNESS [None]
  - WEIGHT DECREASED [None]
  - SOMNOLENCE [None]
